FAERS Safety Report 15483735 (Version 6)
Quarter: 2018Q4

REPORT INFORMATION
  Report Type: Spontaneous
  Country: JP (occurrence: JP)
  Receive Date: 20181010
  Receipt Date: 20181220
  Transmission Date: 20190205
  Serious: Yes (Other)
  Sender: FDA-Public Use
  Company Number: JP-ASTRAZENECA-2018SF02052

PATIENT
  Age: 24147 Day
  Sex: Female
  Weight: 47 kg

DRUGS (1)
  1. IMFINZI [Suspect]
     Active Substance: DURVALUMAB
     Indication: NON-SMALL CELL LUNG CANCER
     Route: 041
     Dates: start: 20180720, end: 20180914

REACTIONS (6)
  - Small intestinal obstruction [Recovered/Resolved]
  - Malignant neoplasm progression [Unknown]
  - Radiation pneumonitis [Not Recovered/Not Resolved]
  - Intestinal metastasis [Recovered/Resolved]
  - Metastases to lymph nodes [Unknown]
  - Enterocolitis [Unknown]

NARRATIVE: CASE EVENT DATE: 20180803
